FAERS Safety Report 11796390 (Version 2)
Quarter: 2015Q4

REPORT INFORMATION
  Report Type: Spontaneous
  Country: US (occurrence: US)
  Receive Date: 20151203
  Receipt Date: 20151222
  Transmission Date: 20160305
  Serious: No
  Sender: FDA-Public Use
  Company Number: US-PFIZER INC-2015421965

PATIENT
  Sex: Female

DRUGS (2)
  1. MENEST [Suspect]
     Active Substance: ESTROGENS, ESTERIFIED
     Indication: HORMONE REPLACEMENT THERAPY
     Dosage: UNK
  2. PREMARIN [Suspect]
     Active Substance: ESTROGENS, CONJUGATED
     Dosage: UNK

REACTIONS (2)
  - Sleep disorder [Unknown]
  - Muscle spasms [Not Recovered/Not Resolved]
